FAERS Safety Report 10215770 (Version 1)
Quarter: 2014Q2

REPORT INFORMATION
  Report Type: Spontaneous
  Country: US (occurrence: None)
  Receive Date: 20140602
  Receipt Date: 20140602
  Transmission Date: 20141212
  Serious: Yes (Hospitalization)
  Sender: FDA-Public Use
  Company Number: LIT-14-0026-W

PATIENT
  Age: 39 Year
  Sex: Male

DRUGS (1)
  1. KETOROLAC TROMETHAMINE [Suspect]
     Indication: PROCEDURAL PAIN
     Route: 042

REACTIONS (5)
  - Pulmonary alveolar haemorrhage [None]
  - Pyrexia [None]
  - Haemoptysis [None]
  - Dyspnoea [None]
  - Oxygen saturation decreased [None]
